FAERS Safety Report 8638271 (Version 4)
Quarter: 2013Q3

REPORT INFORMATION
  Report Type: Report from Study
  Country: DE (occurrence: DE)
  Receive Date: 20120627
  Receipt Date: 20130909
  Transmission Date: 20140515
  Serious: Yes (Hospitalization)
  Sender: FDA-Public Use
  Company Number: PHHO2011DE03647

PATIENT
  Age: 23 Year
  Sex: Female
  Weight: 97.7 kg

DRUGS (21)
  1. BLINDED AFINITOR [Suspect]
     Indication: LYMPHANGIOLEIOMYOMATOSIS
     Dosage: CODE NOT BROKEN
     Route: 048
     Dates: start: 20100520, end: 20110224
  2. BLINDED NO TREATMENT RECEIVED [Suspect]
     Indication: LYMPHANGIOLEIOMYOMATOSIS
     Dosage: CODE NOT BROKEN
     Route: 048
     Dates: start: 20100520, end: 20110224
  3. BLINDED PLACEBO [Suspect]
     Indication: LYMPHANGIOLEIOMYOMATOSIS
     Dosage: CODE NOT BROKEN
     Route: 048
     Dates: start: 20100520, end: 20110224
  4. BLINDED AFINITOR [Suspect]
     Dosage: CODE NOT BROKEN
     Route: 048
     Dates: start: 20110325
  5. BLINDED NO TREATMENT RECEIVED [Suspect]
     Dosage: CODE NOT BROKEN
     Route: 048
     Dates: start: 20110325
  6. BLINDED PLACEBO [Suspect]
     Dosage: CODE NOT BROKEN
     Route: 048
     Dates: start: 20110325
  7. BLINDED AFINITOR [Suspect]
     Dosage: CODE NOT BROKEN
     Route: 048
  8. BLINDED NO TREATMENT RECEIVED [Suspect]
     Dosage: CODE NOT BROKEN
     Route: 048
  9. BLINDED PLACEBO [Suspect]
     Dosage: CODE NOT BROKEN
     Route: 048
  10. SABRIL [Concomitant]
     Indication: EPILEPSY
     Dosage: 1500 MG, BID
     Route: 048
  11. LEPTILAN [Concomitant]
     Indication: CONVULSION
     Dosage: 900 - O - 1200 MG DAILY
     Dates: start: 2007
  12. LAMOTRIGINE [Concomitant]
     Indication: EPILEPSY
     Dosage: 200 - O - 100 MG DAILY
     Route: 048
     Dates: start: 2007
  13. HCT [Concomitant]
     Indication: HYPOTENSION
     Dosage: 25 MG, UNK
     Route: 048
     Dates: start: 201003
  14. L-THYROXINE [Concomitant]
     Indication: HYPOTHYROIDISM
     Dosage: 25 MG, DAILY
     Route: 048
     Dates: start: 200906
  15. MELPERON [Concomitant]
     Dosage: 50 MG, BID
     Dates: start: 20110401, end: 20120616
  16. IMPLANON [Concomitant]
     Indication: CONTRACEPTION
     Dosage: UNK
     Dates: start: 20110130
  17. TORASEMIDE [Concomitant]
     Indication: OEDEMA
     Dosage: 5 MG, DAILY
     Route: 048
     Dates: start: 20120615
  18. TORASEMIDE [Concomitant]
     Dosage: 5 MG, BID
     Route: 048
     Dates: start: 20130528
  19. ORFIRIL [Concomitant]
     Indication: EPILEPSY
  20. FYCOMPA [Concomitant]
     Indication: EPILEPSY
     Dosage: 4 MG
     Route: 048
     Dates: start: 20130619
  21. LOSARTAN [Concomitant]
     Indication: PROTEINURIA
     Dosage: 25 MG, UNK
     Route: 048
     Dates: start: 20130301

REACTIONS (2)
  - Affective disorder [Unknown]
  - Injury [Recovered/Resolved]
